FAERS Safety Report 24207017 (Version 1)
Quarter: 2024Q3

REPORT INFORMATION
  Report Type: Spontaneous
  Country: US (occurrence: US)
  Receive Date: 20240813
  Receipt Date: 20240813
  Transmission Date: 20241016
  Serious: Yes (Hospitalization, Other)
  Sender: AMGEN
  Company Number: US-AMGEN-USASP2024157844

PATIENT
  Age: 66 Year
  Sex: Female

DRUGS (2)
  1. AIMOVIG [Suspect]
     Active Substance: ERENUMAB-AOOE
     Indication: Migraine
     Dosage: 140 MILLIGRAM, QMO
     Route: 058
  2. BOTULINUM TOXIN TYPE A [Concomitant]
     Active Substance: BOTULINUM TOXIN TYPE A
     Indication: Migraine

REACTIONS (4)
  - Squamous cell carcinoma [Unknown]
  - Wrong technique in product usage process [Unknown]
  - Device difficult to use [Unknown]
  - Drug dose omission by device [Unknown]

NARRATIVE: CASE EVENT DATE: 20240101
